FAERS Safety Report 17556349 (Version 1)
Quarter: 2020Q1

REPORT INFORMATION
  Report Type: Spontaneous
  Country: US (occurrence: US)
  Receive Date: 20200310
  Receipt Date: 20200310
  Transmission Date: 20200409
  Serious: Yes (Hospitalization)
  Sender: FDA-Public Use
  Company Number: None

PATIENT
  Age: 67 Year
  Sex: Female

DRUGS (8)
  1. ASPIRIN. [Concomitant]
     Active Substance: ASPIRIN
  2. FARXIGA [Concomitant]
     Active Substance: DAPAGLIFLOZIN PROPANEDIOL
  3. BETAMETH DIP OIN [Concomitant]
  4. JANUVIA [Concomitant]
     Active Substance: SITAGLIPTIN PHOSPHATE
  5. ESZOPICLONE. [Concomitant]
     Active Substance: ESZOPICLONE
  6. HALOBETASL [Concomitant]
  7. ATORVASTATIN [Concomitant]
     Active Substance: ATORVASTATIN
  8. COSENTYX [Suspect]
     Active Substance: SECUKINUMAB
     Indication: PSORIASIS
     Dosage: ?          OTHER FREQUENCY:Q4WKS;?
     Route: 058
     Dates: start: 20190716

REACTIONS (1)
  - Hyperthyroidism [None]

NARRATIVE: CASE EVENT DATE: 20200303
